FAERS Safety Report 8191322-X (Version None)
Quarter: 2012Q1

REPORT INFORMATION
  Report Type: 
  Country: None (occurrence: None)
  Receive Date: 20120307
  Receipt Date: 20120301
  Transmission Date: 20120608
  Serious: Yes (Other)
  Sender: FDA-Public Use
  Company Number: JP-PFIZER INC-2012020031

PATIENT
  Age: 55 Year
  Sex: Male
  Weight: 70 kg

DRUGS (11)
  1. TEGRETOL [Concomitant]
     Indication: PAIN IN EXTREMITY
     Dosage: 200 MG, 1X/DAY
     Route: 048
     Dates: start: 20040908
  2. SITAGLIPTIN PHOSPHATE [Concomitant]
     Indication: DIABETES MELLITUS
     Dosage: 50 MG, 1X/DAY
     Route: 048
     Dates: start: 20110423
  3. TAMSULOSIN HCL [Concomitant]
     Indication: BENIGN PROSTATIC HYPERPLASIA
     Dosage: 0.2 MG, 1X/DAY
     Route: 048
     Dates: start: 20070901
  4. LYRICA [Suspect]
     Dosage: 150 MG, 2X/DAY
     Route: 048
     Dates: start: 20110820
  5. CRESTOR [Concomitant]
     Indication: DYSLIPIDAEMIA
     Dosage: 10 MG, 1X/DAY
     Route: 048
     Dates: start: 20100706
  6. CELECOXIB [Concomitant]
     Indication: SPINAL OSTEOARTHRITIS
     Dosage: 100 MG, 2X/DAY
     Route: 048
     Dates: start: 20090626
  7. VITAMIN PREPARATION COMPOUND [Concomitant]
     Dosage: UNK
     Route: 048
  8. METHYCOBAL [Concomitant]
     Dosage: UNK
     Route: 048
  9. ROHYPNOL [Concomitant]
     Indication: INSOMNIA
     Dosage: 1 MG, 1X/DAY
     Route: 048
     Dates: start: 20040203
  10. LYRICA [Suspect]
     Indication: HYPOAESTHESIA
     Dosage: 75 MG, 2X/DAY
     Route: 048
     Dates: start: 20110528, end: 20110820
  11. AMARYL [Concomitant]
     Indication: DIABETES MELLITUS
     Dosage: 1 MG, 2X/DAY
     Route: 048
     Dates: start: 20110226

REACTIONS (2)
  - ROAD TRAFFIC ACCIDENT [None]
  - LOSS OF CONSCIOUSNESS [None]
